FAERS Safety Report 24812743 (Version 1)
Quarter: 2025Q1

REPORT INFORMATION
  Report Type: Spontaneous
  Country: GB (occurrence: GB)
  Receive Date: 20250107
  Receipt Date: 20250107
  Transmission Date: 20250408
  Serious: Yes (Other)
  Sender: SANOFI AVENTIS
  Company Number: None

PATIENT
  Age: 40 Year
  Sex: Female

DRUGS (1)
  1. ENOXAPARIN SODIUM [Suspect]
     Active Substance: ENOXAPARIN SODIUM

REACTIONS (1)
  - Eye swelling [Recovering/Resolving]

NARRATIVE: CASE EVENT DATE: 20250101
